FAERS Safety Report 14719434 (Version 1)
Quarter: 2018Q2

REPORT INFORMATION
  Report Type: Report from Study
  Country: FR (occurrence: FR)
  Receive Date: 20180405
  Receipt Date: 20180405
  Transmission Date: 20180711
  Serious: Yes (Death)
  Sender: FDA-Public Use
  Company Number: FR-ROCHE-1621314

PATIENT
  Age: 82 Year
  Sex: Female

DRUGS (2)
  1. RITUXIMAB. [Suspect]
     Active Substance: RITUXIMAB
     Indication: HAEMORRHAGE
  2. RITUXIMAB. [Suspect]
     Active Substance: RITUXIMAB
     Indication: PURPURA
     Route: 065
     Dates: start: 20111208

REACTIONS (2)
  - Infusion related reaction [Recovered/Resolved]
  - Death [Fatal]

NARRATIVE: CASE EVENT DATE: 20111216
